FAERS Safety Report 9034105 (Version 2)
Quarter: 2013Q1

REPORT INFORMATION
  Report Type: Spontaneous
  Country: US (occurrence: None)
  Receive Date: 20130114
  Receipt Date: 20130219
  Transmission Date: 20140127
  Serious: Yes (Hospitalization, Disabling, Other)
  Sender: FDA-Public Use
  Company Number: ACO_33667_2013

PATIENT
  Age: 55 Year
  Sex: Female
  Weight: 63.5 kg

DRUGS (2)
  1. AMPYRA (DALFAMPRIDINE) TABLET, 10MG [Suspect]
     Indication: PRODUCT USED FOR UNKNOWN INDICATION
     Dates: start: 20100318
  2. TYSABRI (NATALIZUMAB) [Concomitant]

REACTIONS (7)
  - Pelvic fracture [None]
  - Bedridden [None]
  - Muscle rupture [None]
  - Fall [None]
  - Fatigue [None]
  - Walking aid user [None]
  - Wheelchair user [None]
